FAERS Safety Report 18649092 (Version 1)
Quarter: 2020Q4

REPORT INFORMATION
  Report Type: Spontaneous
  Country: IT (occurrence: IT)
  Receive Date: 20201222
  Receipt Date: 20201222
  Transmission Date: 20210114
  Serious: Yes (Other)
  Sender: FDA-Public Use
  Company Number: IT-AMGEN-ITASP2020205074

PATIENT
  Age: 77 Year
  Sex: Female

DRUGS (2)
  1. PROLIA [Suspect]
     Active Substance: DENOSUMAB
     Indication: OSTEOPOROSIS
     Dosage: UNK, Q6MO
     Route: 065
     Dates: start: 2016, end: 2019
  2. CORTISONE [Concomitant]
     Active Substance: CORTISONE
     Indication: POLYMYALGIA RHEUMATICA
     Dosage: UNK
     Route: 065
     Dates: start: 2016

REACTIONS (3)
  - Fistula [Recovered/Resolved]
  - Pain [Recovered/Resolved]
  - Osteonecrosis of jaw [Recovered/Resolved]
